FAERS Safety Report 7707268-4 (Version None)
Quarter: 2011Q3

REPORT INFORMATION
  Report Type: 
  Country: None (occurrence: None)
  Receive Date: 20110824
  Receipt Date: 20110816
  Transmission Date: 20111222
  Serious: Yes (Other)
  Sender: FDA-Public Use
  Company Number: PHHY2011DE73666

PATIENT
  Sex: Male

DRUGS (1)
  1. RASILEZ HCT [Suspect]
     Dosage: 300/12.5 MG

REACTIONS (2)
  - HYPERTENSIVE CRISIS [None]
  - BLOOD PRESSURE SYSTOLIC INCREASED [None]
